FAERS Safety Report 9444341 (Version 1)
Quarter: 2013Q3

REPORT INFORMATION
  Report Type: Spontaneous
  Country: US (occurrence: None)
  Receive Date: 20130806
  Receipt Date: 20130806
  Transmission Date: 20140515
  Serious: Yes (Hospitalization)
  Sender: FDA-Public Use
  Company Number: None

PATIENT
  Age: 57 Year
  Sex: Male
  Weight: 114.6 kg

DRUGS (1)
  1. LISINOPRIL [Suspect]
     Indication: HYPERTENSION
     Route: 048
     Dates: start: 20110720, end: 20130727

REACTIONS (5)
  - Angioedema [None]
  - Renal failure acute [None]
  - Hypoaesthesia [None]
  - Paraesthesia [None]
  - Lip swelling [None]
